FAERS Safety Report 7133917-8 (Version None)
Quarter: 2010Q4

REPORT INFORMATION
  Report Type: 
  Country: None (occurrence: None)
  Receive Date: 20101203
  Receipt Date: 20100927
  Transmission Date: 20110411
  Serious: Yes (Other)
  Sender: FDA-Public Use
  Company Number: US-BAYER-201021623NA

PATIENT

DRUGS (5)
  1. YAZ [Suspect]
     Route: 048
     Dates: start: 20070601, end: 20090601
  2. YASMIN [Suspect]
     Route: 048
     Dates: start: 20070601, end: 20090601
  3. METFORMIN [Concomitant]
     Dates: start: 20060101
  4. ZYRTEC [Concomitant]
     Indication: MULTIPLE ALLERGIES
     Dates: start: 20040101
  5. THYROID PREPARATIONS [Concomitant]

REACTIONS (3)
  - CHOLECYSTECTOMY [None]
  - CHOLELITHIASIS [None]
  - GALLBLADDER DISORDER [None]
